FAERS Safety Report 8473563-7 (Version None)
Quarter: 2012Q2

REPORT INFORMATION
  Report Type: 
  Country: None (occurrence: None)
  Receive Date: 20120628
  Receipt Date: 20110706
  Transmission Date: 20120825
  Serious: Yes (Other)
  Sender: FDA-Public Use
  Company Number: US-MYLANLABS-2011S1011402

PATIENT
  Age: 16 Year
  Sex: Male

DRUGS (5)
  1. COLACE [Concomitant]
  2. HALDOL [Concomitant]
  3. ZYPREXA [Concomitant]
  4. CLOZAPINE [Suspect]
     Indication: PSYCHOTIC DISORDER
     Route: 048
     Dates: end: 20110526
  5. SEROQUEL [Concomitant]

REACTIONS (2)
  - GRANULOCYTOPENIA [None]
  - LEUKOPENIA [None]
